FAERS Safety Report 7510958-X (Version None)
Quarter: 2011Q2

REPORT INFORMATION
  Report Type: 
  Country: None (occurrence: None)
  Receive Date: 20110531
  Receipt Date: 20110526
  Transmission Date: 20111010
  Serious: No
  Sender: FDA-Public Use
  Company Number: US-PFIZER INC-2011114571

PATIENT
  Age: 48 Year
  Sex: Male

DRUGS (3)
  1. PRISTIQ [Suspect]
     Dosage: 50 MG, DAILY
  2. ZETIA [Concomitant]
     Dosage: UNK MG, UNK
  3. XANAX [Concomitant]
     Dosage: UNK, AS NEEDED

REACTIONS (1)
  - SOMNOLENCE [None]
